FAERS Safety Report 4801633-0 (Version None)
Quarter: 2005Q4

REPORT INFORMATION
  Report Type: 
  Country: None (occurrence: None)
  Receive Date: 20051018
  Receipt Date: 20051011
  Transmission Date: 20060501
  Serious: Yes (Hospitalization)
  Sender: FDA-Public Use
  Company Number: US-BRISTOL-MYERS SQUIBB COMPANY-13140629

PATIENT
  Age: 82 Year
  Sex: Male
  Weight: 75 kg

DRUGS (3)
  1. CETUXIMAB [Suspect]
     Indication: NON-SMALL CELL LUNG CANCER
     Dosage: INITIAL TX DATE: 07-APR-05.  400 MG/M2 X 1 THEN 250 MG/M2 WKLY. COURSE 16 TOTAL DOSE: 482.5 MG
     Route: 042
     Dates: start: 20050922, end: 20050922
  2. CARBOPLATIN [Suspect]
     Indication: NON-SMALL CELL LUNG CANCER
     Dosage: AUC = 6 ADM EVERY 21 DAYS X 4.  INITIAL TX DATE: 07-APR-05. TOTAL DOSE LAST ADM: 488 MG.
     Route: 042
     Dates: start: 20050609, end: 20050609
  3. PACLITAXEL [Suspect]
     Indication: NON-SMALL CELL LUNG CANCER
     Dosage: INITIAL TX DATE: 07-APR-05. 225 MG/M2 EVERY 21 DAYS X 4.  TOTAL DOSE LAST ADM: 425 MG.
     Route: 042
     Dates: start: 20050609, end: 20050609

REACTIONS (1)
  - HAEMOPTYSIS [None]
